FAERS Safety Report 7370727-0 (Version None)
Quarter: 2011Q1

REPORT INFORMATION
  Report Type: 
  Country: None (occurrence: None)
  Receive Date: 20110323
  Receipt Date: 20110307
  Transmission Date: 20110831
  Serious: No
  Sender: FDA-Public Use
  Company Number: US-BAYER-2011-021386

PATIENT
  Sex: Female

DRUGS (9)
  1. LIPITOR [Concomitant]
  2. ADVAIR DISKUS 100/50 [Concomitant]
  3. UNCODEABLE ^UNCLASSIFIABLE^ [Concomitant]
     Indication: MENOPAUSE
  4. UNCODEABLE ^UNCLASSIFIABLE^ [Concomitant]
     Indication: PRURITUS
  5. WELLBUTRIN [Concomitant]
  6. ALEVE (CAPLET) [Suspect]
     Dosage: CONSUMER HAS BEEN USING THE PRODUCT AS NEEDED
     Route: 048
     Dates: start: 20100101
  7. UNCODEABLE ^UNCLASSIFIABLE^ [Concomitant]
  8. UNCODEABLE ^UNCLASSIFIABLE^ [Concomitant]
     Dosage: UNK
     Route: 048
  9. ALLEGRA [Concomitant]

REACTIONS (1)
  - NO ADVERSE EVENT [None]
